FAERS Safety Report 5517792-0 (Version None)
Quarter: 2007Q4

REPORT INFORMATION
  Report Type: 
  Country: None (occurrence: None)
  Receive Date: 20071113
  Receipt Date: 20071105
  Transmission Date: 20080405
  Serious: Yes (Hospitalization)
  Sender: FDA-Public Use
  Company Number: 2007US002750

PATIENT
  Age: 52 Year
  Sex: Male

DRUGS (17)
  1. PROGRAF [Suspect]
     Indication: RENAL TRANSPLANT
     Dosage: 9 MG, BID, ORAL
     Route: 048
     Dates: start: 20051004, end: 20051118
  2. MYCOPHENOLATE MOFETIL [Suspect]
     Indication: RENAL TRANSPLANT
     Dosage: 200 MG, BID, ORAL
     Route: 048
     Dates: start: 20051004
  3. CORTICOSTEROID NOS (CORTICOSTEROID NOS) [Suspect]
     Indication: RENAL TRANSPLANT
  4. LIPITOR [Concomitant]
  5. BACTRIM [Concomitant]
  6. INSULIN [Concomitant]
  7. FUROSEMIDE [Concomitant]
  8. NEPHROCAPS (FOLIC ACID, VITAMINS NOS) [Concomitant]
  9. PHOSLO [Concomitant]
  10. PROTONIX [Concomitant]
  11. VALCYTE [Concomitant]
  12. VANCOMYCIN HYDROCHLORIDE [Concomitant]
  13. LEVOFLOXACIN [Concomitant]
  14. FERROUS SULFATE TAB [Concomitant]
  15. TYLENOL PM (DIPHENHYDRAMINE) [Concomitant]
  16. PERCOCET [Concomitant]
  17. NORVASC [Concomitant]

REACTIONS (1)
  - PERINEPHRIC COLLECTION [None]
